FAERS Safety Report 23775819 (Version 1)
Quarter: 2024Q2

REPORT INFORMATION
  Report Type: Spontaneous
  Country: CA (occurrence: CA)
  Receive Date: 20240424
  Receipt Date: 20240424
  Transmission Date: 20240716
  Serious: Yes (Other)
  Sender: FDA-Public Use
  Company Number: CA-ABBVIE-5727183

PATIENT
  Sex: Female

DRUGS (3)
  1. REFRESH TEARS [Suspect]
     Active Substance: CARBOXYMETHYLCELLULOSE SODIUM
     Indication: Dry eye
     Route: 047
  2. SYSTANE (HYPROMELLOSE 2910 (4000 MPA.S)) [Concomitant]
     Active Substance: HYPROMELLOSE 2910 (4000 MPA.S)
     Indication: Product used for unknown indication
     Dosage: GEL
  3. LATANOPROST [Concomitant]
     Active Substance: LATANOPROST
     Indication: Product used for unknown indication

REACTIONS (3)
  - Cataract [Unknown]
  - Eye pain [Unknown]
  - Glaucoma [Unknown]
